FAERS Safety Report 26104071 (Version 1)
Quarter: 2025Q4

REPORT INFORMATION
  Report Type: Spontaneous
  Country: US (occurrence: US)
  Receive Date: 20251129
  Receipt Date: 20251129
  Transmission Date: 20260117
  Serious: Yes (Other)
  Sender: AMGEN
  Company Number: US-AMGEN-USASP2025235245

PATIENT
  Sex: Female

DRUGS (3)
  1. PROLIA [Suspect]
     Active Substance: DENOSUMAB
     Indication: Osteoporosis
     Dosage: UNK
     Route: 058
     Dates: start: 2020, end: 2020
  2. RECLAST [Concomitant]
     Active Substance: ZOLEDRONIC ACID
     Dosage: UNK (FIVE INJECTIONS, ONE A YEAR)
     Route: 065
     Dates: start: 2014
  3. RECLAST [Concomitant]
     Active Substance: ZOLEDRONIC ACID
     Dosage: UNK
     Route: 065

REACTIONS (7)
  - Nephrolithiasis [Unknown]
  - Arthropathy [Unknown]
  - Fall [Unknown]
  - Lower limb fracture [Unknown]
  - Nasopharyngitis [Unknown]
  - Decreased immune responsiveness [Unknown]
  - Arthritis [Unknown]
